FAERS Safety Report 5876949-X (Version None)
Quarter: 2008Q3

REPORT INFORMATION
  Report Type: 
  Country: None (occurrence: None)
  Receive Date: 20080909
  Receipt Date: 20080909
  Transmission Date: 20090109
  Serious: No
  Sender: FDA-Public Use
  Company Number: None

PATIENT
  Age: 69 Year
  Sex: Male
  Weight: 80.8 kg

DRUGS (1)
  1. LEVAQUIN [Suspect]
     Dosage: 500MG EVERY 24 HOURS IV DRIP
     Route: 041
     Dates: start: 20080828, end: 20080829

REACTIONS (2)
  - INFUSION SITE PAIN [None]
  - INFUSION SITE PRURITUS [None]
